FAERS Safety Report 9630346 (Version 7)
Quarter: 2016Q2

REPORT INFORMATION
  Report Type: Report from Study
  Country: PT (occurrence: PT)
  Receive Date: 20131018
  Receipt Date: 20160429
  Transmission Date: 20160815
  Serious: Yes (Death)
  Sender: FDA-Public Use
  Company Number: PT-ROCHE-1289273

PATIENT
  Age: 71 Year
  Sex: Male

DRUGS (1)
  1. MABTHERA [Suspect]
     Active Substance: RITUXIMAB
     Indication: RHEUMATOID ARTHRITIS
     Dosage: FORM STRENGTH: 500 MG/500ML?1000 MG 2X CYCLE?1000 MG ON DAY 1 AND 1000 MG ON DAY 15, 6/6 MONTHS?(WIT
     Route: 042
     Dates: start: 20100118, end: 20130401

REACTIONS (3)
  - Lymphadenopathy [Fatal]
  - Death [Fatal]
  - Metastatic malignant melanoma [Fatal]

NARRATIVE: CASE EVENT DATE: 201309
